FAERS Safety Report 7582371-0 (Version None)
Quarter: 2011Q2

REPORT INFORMATION
  Report Type: 
  Country: None (occurrence: None)
  Receive Date: 20110630
  Receipt Date: 20110622
  Transmission Date: 20111010
  Serious: Yes (Other)
  Sender: FDA-Public Use
  Company Number: FI-JNJFOC-20110511262

PATIENT
  Age: 10 Year
  Sex: Male

DRUGS (2)
  1. CONCERTA [Suspect]
     Route: 048
     Dates: start: 20101201, end: 20101201
  2. CONCERTA [Suspect]
     Indication: ATTENTION DEFICIT/HYPERACTIVITY DISORDER
     Route: 048
     Dates: start: 20101201, end: 20110101

REACTIONS (5)
  - DECREASED APPETITE [None]
  - EMOTIONAL DISORDER [None]
  - HEADACHE [None]
  - DRUG INEFFECTIVE [None]
  - SINUS ARRHYTHMIA [None]
